FAERS Safety Report 22647380 (Version 1)
Quarter: 2023Q2

REPORT INFORMATION
  Report Type: Spontaneous
  Country: US (occurrence: US)
  Receive Date: 20230627
  Receipt Date: 20230627
  Transmission Date: 20230722
  Serious: No
  Sender: FDA-Public Use
  Company Number: US-BRISTOL-MYERS SQUIBB COMPANY-2023-086836

PATIENT
  Age: 59 Year
  Sex: Male
  Weight: 94.35 kg

DRUGS (2)
  1. VIDAZA [Suspect]
     Active Substance: AZACITIDINE
     Indication: Chronic myeloid leukaemia
     Dosage: DOSE : 152 MG;     FREQ : DAILY FOR 7 DAYS EVERY 4 WEEKS
     Route: 042
  2. VIDAZA [Suspect]
     Active Substance: AZACITIDINE
     Dosage: DOSE : 161 MG;     FREQ : DAILY FOR 7 DAYS EVERY 4 WEEKS
     Route: 042

REACTIONS (2)
  - Weight increased [Unknown]
  - Off label use [Unknown]
